FAERS Safety Report 12732360 (Version 1)
Quarter: 2016Q3

REPORT INFORMATION
  Report Type: Spontaneous
  Country: US (occurrence: US)
  Receive Date: 20160909
  Receipt Date: 20160909
  Transmission Date: 20161109
  Serious: Yes (Disabling)
  Sender: FDA-Public Use
  Company Number: None

PATIENT
  Age: 36 Year
  Sex: Female
  Weight: 69 kg

DRUGS (1)
  1. FUCIDIN [Suspect]
     Active Substance: FUSIDIC ACID
     Indication: ARTHROPOD BITE
     Route: 061
     Dates: start: 20160804, end: 20160907

REACTIONS (5)
  - Dyspepsia [None]
  - Impaired healing [None]
  - Back pain [None]
  - Insomnia [None]
  - Cough [None]

NARRATIVE: CASE EVENT DATE: 20160804
